FAERS Safety Report 8305513 (Version 6)
Quarter: 2013Q2

REPORT INFORMATION
  Report Type: Report from Study
  Country: IE (occurrence: IE)
  Receive Date: 20111221
  Receipt Date: 20130605
  Transmission Date: 20140414
  Serious: Yes (Hospitalization)
  Sender: FDA-Public Use
  Company Number: PHHO2011IE020958

PATIENT
  Sex: 0

DRUGS (11)
  1. WARFARIN SODIUM [Suspect]
     Indication: ATRIAL FIBRILLATION
     Dosage: AS PER INR MG ONCE DAILY
     Route: 048
     Dates: start: 1997, end: 20111209
  2. WARFARIN SODIUM [Suspect]
     Dosage: AS PER INR MG ONCE DAILY
     Route: 048
     Dates: start: 20111212
  3. BISOPROLOL [Suspect]
     Indication: ATRIAL FIBRILLATION
     Dosage: 5 MG, QD
     Route: 048
     Dates: start: 1997, end: 20111209
  4. BISOPROLOL [Suspect]
     Dosage: 5 MG, QD
     Route: 048
  5. CGS 20267 [Suspect]
     Indication: BREAST CANCER
     Dosage: 2.5 MG, QD
     Route: 048
     Dates: start: 20071224, end: 20111209
  6. CGS 20267 [Suspect]
     Dosage: 2.5 MG, QD
     Route: 048
     Dates: start: 20111215, end: 20121111
  7. CGS 20267 [Suspect]
     Dosage: 2.5 MG, QD
     Route: 048
     Dates: start: 20121115
  8. ASPIRIN [Concomitant]
     Indication: ATRIAL FIBRILLATION
     Dosage: 75 MG, QD
  9. PRAVASTATIN [Concomitant]
     Indication: BLOOD CHOLESTEROL INCREASED
     Dosage: 10 MG, QD
  10. CALCICHEW D3 [Concomitant]
     Indication: OSTEOPOROSIS
     Dosage: T 80
     Dates: start: 200806
  11. PROCHLORPERAZINE [Concomitant]
     Indication: VERTIGO
     Dosage: 5 MG, UNK
     Route: 062
     Dates: start: 201112

REACTIONS (3)
  - Syncope [Recovered/Resolved]
  - Presyncope [Recovered/Resolved]
  - Concomitant disease progression [Recovered/Resolved]
